FAERS Safety Report 8699847 (Version 2)
Quarter: 2012Q4

REPORT INFORMATION
  Report Type: 
  Country: US (occurrence: US)
  Receive Date: 20120802
  Receipt Date: 20120913
  Transmission Date: 20130627
  Serious: No
  Sender: FDA-Public Use
  Company Number: US-ASTRAZENECA-2012SE49425

PATIENT
  Age: 77 Year
  Sex: Female
  Weight: 95.3 kg

DRUGS (6)
  1. SYMBICORT [Suspect]
     Indication: ASTHMA
     Dosage: 160/4.5 MCG, TWO PUFFS, TWO TIMES A DAY
     Route: 055
     Dates: start: 2008, end: 20080515
  2. SYMBICORT [Suspect]
     Indication: ASTHMA
     Dosage: 160/4.5 MCG, ONE PUFF, TWO TIMES A DAY
     Route: 055
  3. LOSARTIN [Concomitant]
     Indication: HYPERTENSION
  4. COREG [Concomitant]
  5. PRILOSEC [Concomitant]
  6. KLOR-CON [Concomitant]

REACTIONS (2)
  - Cough [Unknown]
  - Intentional drug misuse [Unknown]
